FAERS Safety Report 7990887-8 (Version None)
Quarter: 2011Q4

REPORT INFORMATION
  Report Type: 
  Country: None (occurrence: None)
  Receive Date: 20111219
  Receipt Date: 20111208
  Transmission Date: 20120403
  Serious: Yes (Hospitalization)
  Sender: FDA-Public Use
  Company Number: BE-ELI_LILLY_AND_COMPANY-BE201007000289

PATIENT
  Sex: Male
  Weight: 56.5 kg

DRUGS (23)
  1. LAXOBERON [Concomitant]
     Dosage: UNK, UNKNOWN
     Route: 065
     Dates: start: 20100506
  2. PEMETREXED [Suspect]
     Indication: HEAD AND NECK CANCER
     Dosage: 500 MG/M2, ON DAY ONE EVERY 21 DAYS
     Route: 042
     Dates: start: 20100407
  3. MOTILIUM [Concomitant]
     Dosage: 20 MG, 3/D
     Route: 065
     Dates: start: 20100529
  4. LYSOMUCIL [Concomitant]
     Dosage: 600 MG, DAILY (1/D)
     Route: 048
  5. PRIMPERAN TAB [Concomitant]
     Dosage: 10 MG, AS NEEDED
     Route: 048
  6. CETUXIMAB [Suspect]
     Indication: HEAD AND NECK CANCER
     Dosage: 400 MG/M2, ON DAY ONE CYCLE ONE ONLY
     Route: 042
     Dates: start: 20100407, end: 20100407
  7. DEXAMETHASONE [Concomitant]
     Dosage: UNK, UNKNOWN
     Route: 065
     Dates: start: 20100524, end: 20100526
  8. FRAXODI [Concomitant]
     Dosage: 3800 U, DAILY (1/D)
     Route: 058
     Dates: start: 20100519
  9. CISPLATIN [Suspect]
     Indication: HEAD AND NECK CANCER
     Dosage: 75 MG/M2, ON DAY ONE EVERY 21 DAYS
     Route: 042
     Dates: start: 20100407
  10. MINOCYCLINE HCL [Concomitant]
     Dosage: 50 MG, 2/D
     Route: 048
     Dates: start: 20100519
  11. ZANTAC [Concomitant]
     Dosage: 300 MG, DAILY (1/D)
     Route: 048
  12. ACETAMINOPHEN [Concomitant]
     Dosage: 1000 MG, AS NEEDED
     Route: 048
     Dates: start: 20100101
  13. NEUROBION /00176001/ [Concomitant]
     Indication: PROPHYLAXIS
     Dosage: UNK, UNKNOWN
     Route: 065
     Dates: start: 20100508, end: 20100501
  14. TERRAMYCIN HCL W/ POLYMYXIN B SULFATE [Concomitant]
     Dosage: UNK, UNKNOWN
     Route: 065
     Dates: start: 20100520
  15. HIBIDIL [Concomitant]
     Dosage: UNK, AS NEEDED
  16. FOLAVIT [Concomitant]
     Indication: PROPHYLAXIS
     Dosage: 400 UG, DAILY (1/D)
     Route: 048
     Dates: start: 20100423
  17. DEXAMETHASONE [Concomitant]
     Indication: PROPHYLAXIS
     Dosage: UNK, UNKNOWN
     Route: 065
     Dates: start: 20100503, end: 20100508
  18. MOVICOL /01625101/ [Concomitant]
     Dosage: UNK, UNKNOWN
     Route: 065
     Dates: start: 20100519
  19. IMODIUM [Concomitant]
     Indication: DIARRHOEA
     Dosage: 2 MG, AS NEEDED
     Route: 060
  20. CETUXIMAB [Suspect]
     Dosage: 250 MG/M2, WEEKLY (1/W)
     Route: 042
  21. DUOVENT [Concomitant]
     Dosage: UNK, 4/D
  22. METRONIDAZOLE [Concomitant]
     Dosage: UNK, UNKNOWN
     Route: 065
  23. OMEPRAZOLE [Concomitant]
     Dosage: UNK, UNKNOWN
     Route: 065
     Dates: start: 20070101

REACTIONS (2)
  - WEIGHT DECREASED [None]
  - BLOOD CREATININE INCREASED [None]
